FAERS Safety Report 22043161 (Version 1)
Quarter: 2023Q1

REPORT INFORMATION
  Report Type: Spontaneous
  Country: US (occurrence: US)
  Receive Date: 20230228
  Receipt Date: 20230228
  Transmission Date: 20230418
  Serious: No
  Sender: FDA-Public Use
  Company Number: US-BRISTOL-MYERS SQUIBB COMPANY-2023-028988

PATIENT

DRUGS (2)
  1. KENALOG [Suspect]
     Active Substance: TRIAMCINOLONE ACETONIDE
     Indication: Product used for unknown indication
  2. KENALOG [Suspect]
     Active Substance: TRIAMCINOLONE ACETONIDE

REACTIONS (1)
  - Product storage error [Unknown]
